FAERS Safety Report 6135081-0 (Version None)
Quarter: 2009Q1

REPORT INFORMATION
  Report Type: 
  Country: None (occurrence: None)
  Receive Date: 20090327
  Receipt Date: 20090320
  Transmission Date: 20090719
  Serious: Yes (Other)
  Sender: FDA-Public Use
  Company Number: ES-ASTRAZENECA-2009AC00919

PATIENT
  Age: 2 Month
  Sex: Female

DRUGS (5)
  1. MEROPENEM [Suspect]
     Indication: RESPIRATORY TRACT INFECTION
     Route: 065
  2. VALPROIC ACID [Interacting]
     Dosage: PRIOR TO MONOTHERAPY
     Route: 065
  3. VALPROIC ACID [Interacting]
     Route: 048
  4. PHENOBARBITAL [Interacting]
     Route: 065
  5. DIAZEPAM [Interacting]
     Route: 065

REACTIONS (2)
  - DRUG INTERACTION [None]
  - DRUG LEVEL DECREASED [None]
